FAERS Safety Report 6226574-6 (Version None)
Quarter: 2009Q2

REPORT INFORMATION
  Report Type: 
  Country: None (occurrence: None)
  Receive Date: 20090610
  Receipt Date: 20090604
  Transmission Date: 20091009
  Serious: Yes (Other)
  Sender: FDA-Public Use
  Company Number: GB-WYE-G03792809

PATIENT
  Age: 30 Year
  Sex: Female

DRUGS (2)
  1. EFFEXOR [Suspect]
  2. CIPRALEX (ESCITALOPRAM, 0) [Suspect]
     Route: 048
     Dates: start: 20090201, end: 20090301

REACTIONS (2)
  - CONTUSION [None]
  - INTERNATIONAL NORMALISED RATIO INCREASED [None]
